FAERS Safety Report 5305604-X (Version None)
Quarter: 2007Q2

REPORT INFORMATION
  Report Type: 
  Country: None (occurrence: None)
  Receive Date: 20070419
  Receipt Date: 20070419
  Transmission Date: 20071010
  Serious: Yes (Life-Threatening, Hospitalization)
  Sender: FDA-Public Use
  Company Number: None

PATIENT
  Age: 10 Year
  Sex: Male
  Weight: 36 kg

DRUGS (2)
  1. LAMOTRIGINE [Suspect]
     Indication: CONVULSION
     Dosage: 25 MG   BID   PO  (DOSE TITRATION FOR 3 WEEK)
     Route: 048
  2. LAMOTRIGINE [Suspect]
     Dosage: 50 MG  BID  PO
     Route: 048

REACTIONS (5)
  - RESPIRATORY DISTRESS [None]
  - SOMNOLENCE [None]
  - STEVENS-JOHNSON SYNDROME [None]
  - VOMITING [None]
  - WHEEZING [None]
